FAERS Safety Report 4967081-8 (Version None)
Quarter: 2006Q2

REPORT INFORMATION
  Report Type: 
  Country: None (occurrence: None)
  Receive Date: 20060403
  Receipt Date: 20060316
  Transmission Date: 20061013
  Serious: No
  Sender: FDA-Public Use
  Company Number: 6021424

PATIENT
  Age: 18 Year
  Sex: Male
  Weight: 81.6475 kg

DRUGS (3)
  1. AMNESTEEM [Suspect]
     Indication: ACNE
     Dosage: 80 MG, 4 IN 1 D; 160 MG, 4 IN 1 D; 40 MG, 1 IN 1 D, ORAL
     Route: 048
     Dates: start: 20060101, end: 20060312
  2. AMNESTEEM [Suspect]
     Indication: ACNE
     Dosage: 80 MG, 4 IN 1 D; 160 MG, 4 IN 1 D; 40 MG, 1 IN 1 D, ORAL
     Route: 048
     Dates: start: 20060313, end: 20060315
  3. AMNESTEEM [Suspect]
     Indication: ACNE
     Dosage: 80 MG, 4 IN 1 D; 160 MG, 4 IN 1 D; 40 MG, 1 IN 1 D, ORAL
     Route: 048
     Dates: start: 20060316, end: 20060316

REACTIONS (4)
  - ANGER [None]
  - CRYING [None]
  - ILL-DEFINED DISORDER [None]
  - INCORRECT DOSE ADMINISTERED [None]
